FAERS Safety Report 22727909 (Version 15)
Quarter: 2025Q3

REPORT INFORMATION
  Report Type: Report from Study
  Country: EU (occurrence: EU)
  Receive Date: 20230720
  Receipt Date: 20250715
  Transmission Date: 20251021
  Serious: Yes (Hospitalization, Other)
  Sender: ASPEN
  Company Number: EU-SA-SAC20230626000718

PATIENT

DRUGS (93)
  1. DEXAMETHASONE [Suspect]
     Active Substance: DEXAMETHASONE
     Indication: Plasma cell myeloma
     Dosage: 20 MG, QW
     Route: 065
     Dates: start: 20230215, end: 20230314
  2. DEXAMETHASONE [Suspect]
     Active Substance: DEXAMETHASONE
     Indication: Plasma cell myeloma refractory
     Dosage: 40 MG, QW
     Route: 065
     Dates: start: 20221221, end: 20230116
  3. DEXAMETHASONE [Suspect]
     Active Substance: DEXAMETHASONE
     Dosage: 40 MG, QW
     Route: 065
     Dates: start: 20221122, end: 20221220
  4. DEXAMETHASONE [Suspect]
     Active Substance: DEXAMETHASONE
     Dosage: 40 MG, QW
     Route: 065
     Dates: start: 20221026, end: 20221121
  5. DEXAMETHASONE [Suspect]
     Active Substance: DEXAMETHASONE
     Dosage: 20 MG, QW
     Route: 065
     Dates: start: 20230117, end: 20230130
  6. DEXAMETHASONE [Suspect]
     Active Substance: DEXAMETHASONE
     Dosage: 10 MG, QW
     Route: 065
     Dates: start: 20230607, end: 20230620
  7. DEXAMETHASONE [Suspect]
     Active Substance: DEXAMETHASONE
     Route: 065
     Dates: start: 20221025
  8. DEXAMETHASONE [Suspect]
     Active Substance: DEXAMETHASONE
     Dosage: 10 MG, QW
     Route: 065
     Dates: start: 20230510, end: 20230606
  9. DEXAMETHASONE [Suspect]
     Active Substance: DEXAMETHASONE
     Dosage: 20 MG, QW
     Route: 065
     Dates: start: 20230315, end: 20230410
  10. DEXAMETHASONE [Suspect]
     Active Substance: DEXAMETHASONE
     Dosage: 40 MG, QW
     Route: 065
     Dates: start: 20221116, end: 20221121
  11. DEXAMETHASONE [Suspect]
     Active Substance: DEXAMETHASONE
     Dosage: 40 MG, QW
     Route: 065
     Dates: start: 20221026, end: 20221107
  12. DEXAMETHASONE [Suspect]
     Active Substance: DEXAMETHASONE
     Dosage: 40 MG, QW
     Route: 065
     Dates: start: 20221025, end: 20221108
  13. DEXAMETHASONE [Suspect]
     Active Substance: DEXAMETHASONE
     Dosage: 40 MG, QW
     Route: 065
     Dates: start: 20221122, end: 20221213
  14. DEXAMETHASONE [Suspect]
     Active Substance: DEXAMETHASONE
     Dosage: 20 MG, QW
     Route: 065
     Dates: start: 20230117, end: 20230206
  15. DEXAMETHASONE [Suspect]
     Active Substance: DEXAMETHASONE
     Dosage: 40 MG, QW
     Route: 065
     Dates: start: 20221221, end: 20230113
  16. DEXAMETHASONE [Suspect]
     Active Substance: DEXAMETHASONE
     Dosage: 20 MG, QW
     Route: 065
     Dates: start: 20230215, end: 20230307
  17. POMALIDOMIDE [Suspect]
     Active Substance: POMALIDOMIDE
     Indication: Plasma cell myeloma
     Dosage: 3 MG, QD
     Route: 065
     Dates: start: 20230117, end: 20230130
  18. POMALIDOMIDE [Suspect]
     Active Substance: POMALIDOMIDE
     Indication: Plasma cell myeloma refractory
     Dosage: 3 MG, QD
     Route: 065
     Dates: start: 20230215, end: 20230307
  19. POMALIDOMIDE [Suspect]
     Active Substance: POMALIDOMIDE
     Dosage: 3 MG, QD
     Route: 065
     Dates: start: 20230315, end: 20230404
  20. POMALIDOMIDE [Suspect]
     Active Substance: POMALIDOMIDE
     Dosage: 3 MG, QD
     Route: 065
     Dates: start: 20230607, end: 20230620
  21. POMALIDOMIDE [Suspect]
     Active Substance: POMALIDOMIDE
     Dosage: 3 MG, QD
     Route: 065
     Dates: start: 20230511, end: 20230531
  22. POMALIDOMIDE [Suspect]
     Active Substance: POMALIDOMIDE
     Dosage: 4 MG, QD
     Route: 065
     Dates: start: 20221026, end: 20221115
  23. POMALIDOMIDE [Suspect]
     Active Substance: POMALIDOMIDE
     Dosage: 4 MG, QD
     Route: 065
     Dates: start: 20221122, end: 20221212
  24. POMALIDOMIDE [Suspect]
     Active Substance: POMALIDOMIDE
     Dosage: 3 MG, QD
     Route: 065
     Dates: start: 20221221, end: 20230110
  25. POMALIDOMIDE [Suspect]
     Active Substance: POMALIDOMIDE
     Route: 065
     Dates: start: 20221025
  26. POMALIDOMIDE [Suspect]
     Active Substance: POMALIDOMIDE
     Route: 065
  27. POMALIDOMIDE [Suspect]
     Active Substance: POMALIDOMIDE
     Dosage: 4 MG, QD
     Route: 065
     Dates: start: 20221026, end: 20221107
  28. POMALIDOMIDE [Suspect]
     Active Substance: POMALIDOMIDE
     Dosage: 4 MG, QD
     Route: 065
     Dates: start: 20221025, end: 20221108
  29. POMALIDOMIDE [Suspect]
     Active Substance: POMALIDOMIDE
     Dosage: 3 MG, QD
     Route: 065
     Dates: start: 20231108, end: 20231128
  30. POMALIDOMIDE [Suspect]
     Active Substance: POMALIDOMIDE
     Dosage: 3 MG, QD
     Route: 065
     Dates: start: 20230913, end: 20231003
  31. POMALIDOMIDE [Suspect]
     Active Substance: POMALIDOMIDE
     Dosage: 3 MG, QD
     Route: 065
     Dates: start: 20230718, end: 20230807
  32. POMALIDOMIDE [Suspect]
     Active Substance: POMALIDOMIDE
     Dosage: 3 MG, QD
     Route: 065
     Dates: start: 20231011, end: 20231031
  33. POMALIDOMIDE [Suspect]
     Active Substance: POMALIDOMIDE
     Dosage: 3 MG, QD
     Route: 065
     Dates: start: 20230818, end: 20230907
  34. POMALIDOMIDE [Suspect]
     Active Substance: POMALIDOMIDE
     Dosage: 3 MG, QD
     Route: 065
     Dates: start: 20231202, end: 20231226
  35. POMALIDOMIDE [Suspect]
     Active Substance: POMALIDOMIDE
     Dosage: 3 MG, QD
     Route: 065
     Dates: start: 20211221, end: 20230110
  36. POMALIDOMIDE [Suspect]
     Active Substance: POMALIDOMIDE
     Dosage: 3 MG, QD
     Route: 065
     Dates: start: 20240104, end: 20240124
  37. POMALIDOMIDE [Suspect]
     Active Substance: POMALIDOMIDE
     Dosage: 3 MG, QD
     Route: 065
     Dates: start: 20240228
  38. POMALIDOMIDE [Suspect]
     Active Substance: POMALIDOMIDE
     Dosage: 2 MG, QD
     Route: 065
     Dates: start: 20240228, end: 20240319
  39. POMALIDOMIDE [Suspect]
     Active Substance: POMALIDOMIDE
     Dosage: 3 MG, QD
     Route: 065
     Dates: start: 20230117, end: 20230206
  40. ISATUXIMAB [Suspect]
     Active Substance: ISATUXIMAB
     Indication: Plasma cell myeloma refractory
     Dosage: 900 MG, BIW
     Route: 065
     Dates: start: 20230215, end: 20230307
  41. ISATUXIMAB [Suspect]
     Active Substance: ISATUXIMAB
     Indication: Plasma cell myeloma
     Dosage: 940 MG, BIW
     Route: 065
     Dates: start: 20230117, end: 20230130
  42. ISATUXIMAB [Suspect]
     Active Substance: ISATUXIMAB
     Dosage: 1000 MG, BIW
     Route: 065
     Dates: start: 20230607, end: 20230620
  43. ISATUXIMAB [Suspect]
     Active Substance: ISATUXIMAB
     Dosage: 940 MG, BIW
     Route: 065
     Dates: start: 20221221, end: 20230110
  44. ISATUXIMAB [Suspect]
     Active Substance: ISATUXIMAB
     Dosage: 950 MG, BIW
     Route: 065
     Dates: start: 20230411, end: 20230502
  45. ISATUXIMAB [Suspect]
     Active Substance: ISATUXIMAB
     Dosage: 920 MG, BIW
     Route: 065
     Dates: start: 20221122, end: 20221206
  46. ISATUXIMAB [Suspect]
     Active Substance: ISATUXIMAB
     Dosage: 950 MG, BIW
     Route: 065
     Dates: start: 20230510, end: 20230531
  47. ISATUXIMAB [Suspect]
     Active Substance: ISATUXIMAB
     Dosage: 940 MG, QW
     Route: 065
     Dates: start: 20221026, end: 20221122
  48. ISATUXIMAB [Suspect]
     Active Substance: ISATUXIMAB
     Route: 065
     Dates: start: 20221025, end: 20221108
  49. ISATUXIMAB [Suspect]
     Active Substance: ISATUXIMAB
     Dosage: 930 MG, BIW
     Route: 065
     Dates: start: 20221207, end: 20221213
  50. ISATUXIMAB [Suspect]
     Active Substance: ISATUXIMAB
     Dosage: 940 MG, BIW
     Route: 065
     Dates: start: 20230315, end: 20230404
  51. ISATUXIMAB [Suspect]
     Active Substance: ISATUXIMAB
     Dosage: 940 MG, BIW
     Route: 065
     Dates: start: 20221026, end: 20221107
  52. ISATUXIMAB [Suspect]
     Active Substance: ISATUXIMAB
     Dosage: 940 MG, BIW
     Route: 065
     Dates: start: 20221116, end: 20221121
  53. ISATUXIMAB [Suspect]
     Active Substance: ISATUXIMAB
     Dosage: 900 MG, BIW
     Route: 065
     Dates: start: 20230718, end: 20230807
  54. ISATUXIMAB [Suspect]
     Active Substance: ISATUXIMAB
     Dosage: 900 MG, BIW
     Route: 065
     Dates: start: 20230117, end: 20230130
  55. ISATUXIMAB [Suspect]
     Active Substance: ISATUXIMAB
     Dosage: 940 MG, QW
     Route: 065
     Dates: start: 20221025, end: 20221108
  56. ISATUXIMAB [Suspect]
     Active Substance: ISATUXIMAB
     Dosage: 950 MG, BIW
     Route: 065
     Dates: start: 20230913, end: 20231003
  57. ISATUXIMAB [Suspect]
     Active Substance: ISATUXIMAB
     Dosage: 940 MG, BIW
     Route: 065
     Dates: start: 20230818, end: 20230907
  58. ISATUXIMAB [Suspect]
     Active Substance: ISATUXIMAB
     Dosage: 900 MG, QM
     Route: 065
     Dates: start: 20231011, end: 20231031
  59. ISATUXIMAB [Suspect]
     Active Substance: ISATUXIMAB
     Dosage: 900 MG, QM
     Route: 065
     Dates: start: 20231106
  60. ISATUXIMAB [Suspect]
     Active Substance: ISATUXIMAB
     Dosage: 900 MG, QM
     Route: 065
     Dates: start: 20231108, end: 20231128
  61. ISATUXIMAB [Suspect]
     Active Substance: ISATUXIMAB
     Dosage: 920 MG, QM
     Route: 065
     Dates: start: 20231202, end: 20231229
  62. ISATUXIMAB [Suspect]
     Active Substance: ISATUXIMAB
     Dosage: 900 MG, QD
     Route: 065
     Dates: start: 20240202, end: 20240222
  63. ISATUXIMAB [Suspect]
     Active Substance: ISATUXIMAB
     Dosage: 900 MG, QM
     Route: 065
     Dates: start: 20240228, end: 20240319
  64. ISATUXIMAB [Suspect]
     Active Substance: ISATUXIMAB
     Dosage: 910 MG, QM
     Route: 065
     Dates: start: 20240104, end: 20240124
  65. ISATUXIMAB [Suspect]
     Active Substance: ISATUXIMAB
     Dosage: 900 MG, BIW
     Route: 065
     Dates: start: 20230215, end: 20230228
  66. BACTRIM [Concomitant]
     Active Substance: SULFAMETHOXAZOLE\TRIMETHOPRIM
     Indication: Prophylaxis
     Route: 065
     Dates: start: 20211213, end: 20221122
  67. ENOXAPARIN SODIUM [Concomitant]
     Active Substance: ENOXAPARIN SODIUM
     Indication: Prophylaxis
     Route: 065
     Dates: start: 20230131, end: 20230207
  68. AMIODARONE [Concomitant]
     Active Substance: AMIODARONE
     Indication: Adverse event
     Route: 065
     Dates: start: 20230201, end: 20230630
  69. AMIODARONE [Concomitant]
     Active Substance: AMIODARONE
     Route: 065
     Dates: start: 20230630
  70. FOLIC ACID [Concomitant]
     Active Substance: FOLIC ACID
     Indication: Prophylaxis
     Route: 065
     Dates: start: 20210713, end: 20221221
  71. AMOXICILLIN [Concomitant]
     Active Substance: AMOXICILLIN
     Indication: Adverse event
     Route: 065
     Dates: start: 20230131, end: 20230206
  72. PANTOPRAZOLE [Concomitant]
     Active Substance: PANTOPRAZOLE
     Indication: Prophylaxis
     Route: 065
     Dates: start: 20210713
  73. LEVOCETIRIZINE DIHYDROCHLORIDE [Concomitant]
     Active Substance: LEVOCETIRIZINE DIHYDROCHLORIDE
     Indication: Prophylaxis
     Route: 065
     Dates: start: 20221221
  74. ENOXAPARIN SODIUM [Concomitant]
     Active Substance: ENOXAPARIN SODIUM
     Indication: Prophylaxis
     Route: 065
     Dates: start: 20221018, end: 20230130
  75. FOSFOMYCIN [Concomitant]
     Active Substance: FOSFOMYCIN
     Indication: Prophylaxis
     Route: 065
     Dates: start: 20230620, end: 20230620
  76. ATORVASTATIN [Concomitant]
     Active Substance: ATORVASTATIN
     Indication: Prophylaxis
     Route: 065
     Dates: start: 20220516
  77. DAFALGAN [Concomitant]
     Active Substance: ACETAMINOPHEN
     Indication: Prophylaxis
     Route: 065
     Dates: start: 20221221
  78. ACYCLOVIR [Concomitant]
     Active Substance: ACYCLOVIR
     Indication: Prophylaxis
     Route: 065
     Dates: start: 20210713
  79. FILGRASTIM [Concomitant]
     Active Substance: FILGRASTIM
     Indication: Adverse event
     Route: 065
     Dates: start: 20230215, end: 20230217
  80. FILGRASTIM [Concomitant]
     Active Substance: FILGRASTIM
     Indication: Prophylaxis
     Route: 065
     Dates: start: 20230117, end: 20230119
  81. FILGRASTIM [Concomitant]
     Active Substance: FILGRASTIM
     Indication: Adverse event
     Route: 065
     Dates: start: 20221221, end: 20221223
  82. FILGRASTIM [Concomitant]
     Active Substance: FILGRASTIM
     Route: 065
  83. FILGRASTIM [Concomitant]
     Active Substance: FILGRASTIM
     Route: 065
     Dates: start: 20221109
  84. CALCIUM [Concomitant]
     Active Substance: CALCIUM
     Indication: Prophylaxis
     Route: 065
     Dates: start: 20221122
  85. METFORMIN [Concomitant]
     Active Substance: METFORMIN HYDROCHLORIDE
     Indication: Type 2 diabetes mellitus
     Route: 065
     Dates: start: 20210713, end: 20230315
  86. OSELTAMIVIR [Concomitant]
     Active Substance: OSELTAMIVIR
     Indication: Adverse event
     Route: 065
     Dates: start: 20230201, end: 20230208
  87. CHOLECALCIFEROL [Concomitant]
     Active Substance: CHOLECALCIFEROL
     Indication: Prophylaxis
     Route: 065
     Dates: start: 20221121
  88. ZOMETA [Concomitant]
     Active Substance: ZOLEDRONIC ACID
     Indication: Prophylaxis
     Route: 065
     Dates: start: 20221221
  89. INSULIN ASPART [Concomitant]
     Active Substance: INSULIN ASPART
     Indication: Type 2 diabetes mellitus
     Route: 065
     Dates: start: 20230315
  90. INSULIN NOS [Concomitant]
     Active Substance: INSULIN NOS
     Indication: Type 2 diabetes mellitus
     Route: 065
     Dates: start: 20221122, end: 20230315
  91. ELIQUIS [Concomitant]
     Active Substance: APIXABAN
     Indication: Prophylaxis
     Route: 065
     Dates: start: 20230208
  92. TAMSULOSIN [Concomitant]
     Active Substance: TAMSULOSIN
     Indication: Product used for unknown indication
     Route: 065
     Dates: start: 20230707
  93. LANTUS [Concomitant]
     Active Substance: INSULIN GLARGINE
     Indication: Product used for unknown indication
     Route: 065
     Dates: start: 20221122, end: 20230315

REACTIONS (5)
  - Interstitial lung disease [Recovered/Resolved]
  - Pneumonia [Recovered/Resolved]
  - Infection [Recovered/Resolved]
  - Neutrophil count decreased [Recovered/Resolved]
  - Pollakiuria [Recovered/Resolved]

NARRATIVE: CASE EVENT DATE: 20230620
